FAERS Safety Report 11248881 (Version 1)
Quarter: 2015Q3

REPORT INFORMATION
  Report Type: Spontaneous
  Country: CN (occurrence: CN)
  Receive Date: 20150708
  Receipt Date: 20150708
  Transmission Date: 20151125
  Serious: Yes (Other)
  Sender: FDA-Public Use
  Company Number: CN-ASTRAZENECA-2015SE64341

PATIENT
  Sex: Male

DRUGS (4)
  1. AMOXICILLIN. [Concomitant]
     Active Substance: AMOXICILLIN
     Indication: HELICOBACTER INFECTION
  2. NEXIUM [Suspect]
     Active Substance: ESOMEPRAZOLE MAGNESIUM
     Indication: HELICOBACTER INFECTION
     Route: 048
  3. FURAZOLIDONE [Concomitant]
     Active Substance: FURAZOLIDONE
     Indication: HELICOBACTER INFECTION
  4. BISMUTH. [Concomitant]
     Active Substance: BISMUTH
     Indication: HELICOBACTER INFECTION

REACTIONS (1)
  - Deafness [Recovered/Resolved]
